FAERS Safety Report 13489839 (Version 1)
Quarter: 2017Q2

REPORT INFORMATION
  Report Type: Spontaneous
  Country: JP (occurrence: JP)
  Receive Date: 20170426
  Receipt Date: 20170426
  Transmission Date: 20170830
  Serious: No
  Sender: FDA-Public Use
  Company Number: JP-ALLERGAN-1670540US

PATIENT
  Age: 48 Year
  Sex: Female

DRUGS (2)
  1. SYCREST [Suspect]
     Active Substance: ASENAPINE MALEATE
     Indication: SCHIZOPHRENIA
     Dosage: 5 MG, BID
     Route: 060
     Dates: start: 20160716
  2. BROTIZOLAM [Concomitant]
     Active Substance: BROTIZOLAM
     Indication: PRODUCT USED FOR UNKNOWN INDICATION
     Dosage: UNK
     Dates: start: 20120303

REACTIONS (2)
  - Oropharyngeal pain [Not Recovered/Not Resolved]
  - Cough [Recovering/Resolving]

NARRATIVE: CASE EVENT DATE: 20160816
